FAERS Safety Report 24251893 (Version 2)
Quarter: 2024Q4

REPORT INFORMATION
  Report Type: Spontaneous
  Country: US (occurrence: US)
  Receive Date: 20240827
  Receipt Date: 20241115
  Transmission Date: 20250115
  Serious: No
  Sender: PADAGIS
  Company Number: US-PADAGIS-2024PAD01350

PATIENT

DRUGS (2)
  1. TESTOSTERONE CYPIONATE [Suspect]
     Active Substance: TESTOSTERONE CYPIONATE
     Indication: Product used for unknown indication
     Dosage: MORE THAN 1 ML EVERY TWO WEEKS
     Route: 065
  2. TESTOSTERONE CYPIONATE [Suspect]
     Active Substance: TESTOSTERONE CYPIONATE
     Dosage: MORE THAN 1 ML ONCE EVERY WEEK
     Route: 065

REACTIONS (4)
  - Blood testosterone decreased [Recovering/Resolving]
  - Incorrect dose administered [Unknown]
  - Wrong device [Unknown]
  - Product packaging quantity issue [Unknown]
